FAERS Safety Report 14491455 (Version 4)
Quarter: 2019Q2

REPORT INFORMATION
  Report Type: Report from Study
  Country: JP (occurrence: JP)
  Receive Date: 20180206
  Receipt Date: 20190628
  Transmission Date: 20190711
  Serious: Yes (Death, Hospitalization)
  Sender: FDA-Public Use
  Company Number: PHJP2018JP002216

PATIENT
  Age: 37 Year
  Sex: Male

DRUGS (7)
  1. OPDIVO [Concomitant]
     Active Substance: NIVOLUMAB
     Indication: PRODUCT USED FOR UNKNOWN INDICATION
     Dosage: 3 MG/KG, UNK
     Route: 065
     Dates: start: 20170210
  2. MEKINIST [Suspect]
     Active Substance: TRAMETINIB DIMETHYL SULFOXIDE
     Indication: MALIGNANT MELANOMA STAGE II
     Dosage: 2 MG, UNK
     Route: 048
     Dates: start: 20160606, end: 20161108
  3. TAFINLAR [Suspect]
     Active Substance: DABRAFENIB MESYLATE
     Indication: MALIGNANT MELANOMA STAGE II
     Dosage: 300 MG, UNK
     Route: 048
     Dates: start: 20160606, end: 20161108
  4. TAFINLAR [Suspect]
     Active Substance: DABRAFENIB MESYLATE
     Dosage: 300 MG, UNK
     Route: 048
     Dates: start: 20161219, end: 20170109
  5. MEKINIST [Suspect]
     Active Substance: TRAMETINIB DIMETHYL SULFOXIDE
     Dosage: 2 MG, UNK
     Route: 048
     Dates: start: 20170111, end: 20170126
  6. MEKINIST [Suspect]
     Active Substance: TRAMETINIB DIMETHYL SULFOXIDE
     Dosage: 2 MG, UNK
     Route: 048
     Dates: start: 20161219, end: 20170109
  7. TAFINLAR [Suspect]
     Active Substance: DABRAFENIB MESYLATE
     Dosage: 300 MG, UNK
     Route: 048
     Dates: start: 20170111, end: 20170126

REACTIONS (7)
  - Monoplegia [Fatal]
  - Leukoderma [Not Recovered/Not Resolved]
  - Rash [Recovered/Resolved]
  - Metastases to central nervous system [Fatal]
  - Blood creatine phosphokinase increased [Recovering/Resolving]
  - Malignant neoplasm progression [Fatal]
  - Malignant melanoma stage II [Fatal]

NARRATIVE: CASE EVENT DATE: 20160704
